FAERS Safety Report 22312221 (Version 1)
Quarter: 2023Q2

REPORT INFORMATION
  Report Type: Report from Study
  Country: CA (occurrence: CA)
  Receive Date: 20230512
  Receipt Date: 20230512
  Transmission Date: 20230721
  Serious: Yes (Other)
  Sender: FDA-Public Use
  Company Number: CA-JNJFOC-20230520083

PATIENT
  Age: 41 Year
  Sex: Male
  Weight: 98 kg

DRUGS (1)
  1. REMICADE [Suspect]
     Active Substance: INFLIXIMAB
     Indication: Crohn^s disease
     Dosage: REMICADE HOLD ON 23-MAR-2023
     Route: 041
     Dates: start: 20110712

REACTIONS (1)
  - Gastrointestinal carcinoma [Unknown]

NARRATIVE: CASE EVENT DATE: 20230501
